FAERS Safety Report 8249185-X (Version None)
Quarter: 2012Q1

REPORT INFORMATION
  Report Type: 
  Country: None (occurrence: None)
  Receive Date: 20120328
  Receipt Date: 20120316
  Transmission Date: 20120608
  Serious: Yes (Hospitalization, Disabling, Other)
  Sender: FDA-Public Use
  Company Number: 2010MA005104

PATIENT
  Sex: Male
  Weight: 83.9154 kg

DRUGS (88)
  1. ACIDOPHILUS [Concomitant]
  2. ALISKIREN/VALSARTAN [Concomitant]
  3. AMITRIPTYLINE HCL [Concomitant]
  4. ASPIRIN [Concomitant]
  5. CLONAZEPAM [Concomitant]
  6. CORTISOL SR [Concomitant]
  7. DEPAKOTE [Concomitant]
  8. PAREGORIC [Concomitant]
  9. FLURAZEPAM [Concomitant]
  10. MECLIZINE [Concomitant]
  11. MILK THISTLE [Concomitant]
  12. MIRTAZAPINE [Concomitant]
  13. NEUTRA-TAB [Concomitant]
  14. PREVACID [Concomitant]
  15. PROTONIX [Concomitant]
  16. SINGULAIR [Concomitant]
  17. AMBIEN [Concomitant]
  18. CRYSTALLINE VIT B12 INJ [Concomitant]
  19. BENZONATATE [Concomitant]
  20. METHYLDOPA [Concomitant]
  21. NYQUIL [Concomitant]
  22. PROMETHAZINE W/ CODEINE [Concomitant]
  23. PROPOXYPHENE NAPSYLATE [Concomitant]
  24. PROZAC [Concomitant]
  25. THEOPHYLLINE [Concomitant]
  26. ALLERGY SERUM [Concomitant]
  27. BENADRYL [Concomitant]
  28. DEPO-TESTOSTERONE [Concomitant]
  29. DONNATAL [Concomitant]
  30. HYDROCODONE BITARTRATE AND ACETAMINOPHEN [Concomitant]
  31. HYPRO-ANYSTATIN [Concomitant]
  32. NATURAL YEAST CLEANSE [Concomitant]
  33. NEXIUM [Concomitant]
  34. NYSTATIN [Concomitant]
  35. METOCLOPRAMIDE [Suspect]
     Indication: GASTROOESOPHAGEAL REFLUX DISEASE
     Dosage: 10 MG;QID;PO
     Route: 048
     Dates: start: 19980813, end: 20090304
  36. ALLERGY SHOTS [Concomitant]
  37. COQ10 [Concomitant]
  38. DEXAMETHASONE [Concomitant]
  39. DIOVAN [Concomitant]
  40. DOMPERIDONE [Concomitant]
  41. DYAZIDE [Concomitant]
  42. PHENERGAN EXPECTORANT W/ CODEINE [Concomitant]
  43. SENOKOT [Concomitant]
  44. SINEMET [Concomitant]
  45. 5-HTP [Concomitant]
  46. KAOPECTATE [Concomitant]
  47. MULTI-VITAMINS [Concomitant]
  48. NASACORT [Concomitant]
  49. NIASPAN [Concomitant]
  50. PROGESTERONE [Concomitant]
  51. PULMICORT [Concomitant]
  52. VALTURNA [Concomitant]
  53. VITAMIN B6 [Concomitant]
  54. ZITHROMAX [Concomitant]
  55. ZOFRAN [Concomitant]
  56. ZYRTEC [Concomitant]
  57. CIPRO HC [Concomitant]
  58. CLARITIN [Concomitant]
  59. CORTISOL [Concomitant]
  60. CRESTOR [Concomitant]
  61. DIAZEPAM [Concomitant]
  62. FLUOXETINE [Concomitant]
  63. HYDROXYZINE [Concomitant]
  64. LEVITRA [Concomitant]
  65. MINOCYCLINE HCL [Concomitant]
  66. PEPCID [Concomitant]
  67. POTASSIUM [Concomitant]
  68. PROPRANOLOL [Concomitant]
  69. TESTOSTERONE [Concomitant]
  70. TOPAMAX [Concomitant]
  71. VITAMIN C + D [Concomitant]
  72. XOPENEX [Concomitant]
  73. ALLEGRA [Concomitant]
  74. ANTIVERT [Concomitant]
  75. CLARITHROMYCIN [Concomitant]
  76. FLONASE [Concomitant]
  77. PRILOSEC [Concomitant]
  78. SUCRALFATE [Concomitant]
  79. SULFAMETHOXAZOLE AND TRIMETHOPRIM [Concomitant]
  80. AMODIPINE [Concomitant]
  81. CIPRO TABS [Concomitant]
  82. CYANOCOBALAMIN [Concomitant]
  83. DIVALPROEX SODIUM [Concomitant]
  84. LEVOTHROID [Concomitant]
  85. MUCINEX [Concomitant]
  86. NATURAL THYROID [Concomitant]
  87. SYMBICORT [Concomitant]
  88. XYZAL [Concomitant]

REACTIONS (16)
  - TARDIVE DYSKINESIA [None]
  - EMOTIONAL DISORDER [None]
  - SWOLLEN TONGUE [None]
  - SLEEP APNOEA SYNDROME [None]
  - PAIN [None]
  - DISTURBANCE IN ATTENTION [None]
  - FALL [None]
  - ECONOMIC PROBLEM [None]
  - DYSPHEMIA [None]
  - DYSPNOEA [None]
  - ASTHMA [None]
  - EXTRAPYRAMIDAL DISORDER [None]
  - ANXIETY [None]
  - COUGH [None]
  - TRISMUS [None]
  - TREMOR [None]
